FAERS Safety Report 9395976 (Version 5)
Quarter: 2014Q2

REPORT INFORMATION
  Report Type: Spontaneous
  Country: US (occurrence: US)
  Receive Date: 20130711
  Receipt Date: 20140507
  Transmission Date: 20141212
  Serious: Yes (Disabling, Other)
  Sender: FDA-Public Use
  Company Number: US-PFIZER INC-2013203858

PATIENT
  Age: 51 Year
  Sex: Female
  Weight: 84.81 kg

DRUGS (6)
  1. LYRICA [Suspect]
     Indication: FIBROMYALGIA
     Dosage: UNK
  2. LYRICA [Suspect]
     Indication: PAIN
     Dosage: 300 MG, 4X/DAY
  3. LYRICA [Suspect]
     Dosage: UNK
  4. PROTONIX [Suspect]
     Dosage: UNK
  5. METOPROLOL [Concomitant]
     Indication: BLOOD PRESSURE ABNORMAL
     Dosage: 100 MG, DAILY
  6. HYDROCHLOROTHIAZIDE [Concomitant]
     Indication: BLOOD PRESSURE ABNORMAL
     Dosage: 5 MG, DAILY

REACTIONS (11)
  - Chronic obstructive pulmonary disease [Unknown]
  - Arthralgia [Unknown]
  - Headache [Unknown]
  - Breast disorder [Unknown]
  - Fibromyalgia [Unknown]
  - Depression [Unknown]
  - Malaise [Unknown]
  - Pain [Unknown]
  - Memory impairment [Unknown]
  - Dizziness [Unknown]
  - Weight increased [Unknown]
